FAERS Safety Report 4995102-5 (Version None)
Quarter: 2006Q2

REPORT INFORMATION
  Report Type: 
  Country: None (occurrence: None)
  Receive Date: 20060508
  Receipt Date: 20041210
  Transmission Date: 20061013
  Serious: Yes (Hospitalization, Disabling, Other)
  Sender: FDA-Public Use
  Company Number: US-MERCK-0412USA01378

PATIENT
  Age: 70 Year
  Sex: Female
  Weight: 70 kg

DRUGS (1)
  1. VIOXX [Suspect]
     Indication: RHEUMATOID ARTHRITIS
     Route: 048
     Dates: start: 20000101, end: 20040930

REACTIONS (5)
  - CAROTID ARTERY DISEASE [None]
  - CONVULSION [None]
  - ISCHAEMIC STROKE [None]
  - SINUSITIS [None]
  - TRANSIENT ISCHAEMIC ATTACK [None]
